FAERS Safety Report 18728723 (Version 1)
Quarter: 2021Q1

REPORT INFORMATION
  Report Type: Spontaneous
  Country: CZ (occurrence: CZ)
  Receive Date: 20210112
  Receipt Date: 20210112
  Transmission Date: 20210419
  Serious: Yes (Other)
  Sender: FDA-Public Use
  Company Number: CZ-AUROBINDO-AUR-APL-2020-062969

PATIENT
  Age: 41 Year
  Sex: Female

DRUGS (2)
  1. TOPIRAMATE. [Suspect]
     Active Substance: TOPIRAMATE
     Indication: MIGRAINE
     Dosage: 25 MILLIGRAM, TWO TIMES A DAY (50 MILLIGRAM, ONCE A DAY)
     Route: 065
     Dates: start: 2016, end: 2016
  2. METOPROLOL. [Suspect]
     Active Substance: METOPROLOL
     Indication: MIGRAINE
     Dosage: 50 MILLIGRAM, ONCE A DAY
     Route: 048
     Dates: start: 201601, end: 2016

REACTIONS (7)
  - Presyncope [Recovered/Resolved]
  - Drug titration error [Unknown]
  - Anxiety [Unknown]
  - Confusional state [Recovered/Resolved]
  - Syncope [Unknown]
  - Medication error [Unknown]
  - Sedation [Recovered/Resolved]

NARRATIVE: CASE EVENT DATE: 2016
